FAERS Safety Report 12214069 (Version 1)
Quarter: 2016Q1

REPORT INFORMATION
  Report Type: Spontaneous
  Country: US (occurrence: US)
  Receive Date: 20160328
  Receipt Date: 20160328
  Transmission Date: 20160526
  Serious: No
  Sender: FDA-Public Use
  Company Number: US-BAYER-2016-059160

PATIENT
  Age: 74 Year
  Sex: Female
  Weight: 106.58 kg

DRUGS (6)
  1. BAYER LOW DOSE [Concomitant]
     Active Substance: ASPIRIN
  2. TRIMETAZIDINE [Concomitant]
     Active Substance: TRIMETAZIDINE
  3. CLOPIDOGREL [Concomitant]
     Active Substance: CLOPIDOGREL BISULFATE
  4. CRESTOR [Concomitant]
     Active Substance: ROSUVASTATIN CALCIUM
  5. CLARITIN [Suspect]
     Active Substance: LORATADINE
     Indication: SEASONAL ALLERGY
     Dosage: 1 DF, QD
     Route: 048
     Dates: start: 20160324
  6. METOPROLOL. [Concomitant]
     Active Substance: METOPROLOL

REACTIONS (1)
  - Expired product administered [None]

NARRATIVE: CASE EVENT DATE: 20160324
